FAERS Safety Report 17173881 (Version 2)
Quarter: 2020Q2

REPORT INFORMATION
  Report Type: Spontaneous
  Country: US (occurrence: US)
  Receive Date: 20191219
  Receipt Date: 20200512
  Transmission Date: 20200713
  Serious: No
  Sender: FDA-Public Use
  Company Number: US-PFIZER INC-2019546975

PATIENT
  Age: 43 Year
  Sex: Female
  Weight: 68.04 kg

DRUGS (3)
  1. FULVESTRANT. [Concomitant]
     Active Substance: FULVESTRANT
     Indication: BREAST CANCER METASTATIC
     Dosage: UNK, MONTHLY(ONCE A MONTH)
  2. IBRANCE [Suspect]
     Active Substance: PALBOCICLIB
     Indication: BREAST CANCER METASTATIC
     Dosage: 75 MG(ONCE A DAY FOR 3 WEEKS AND THEN OFF ONE WEEK)
     Route: 048
     Dates: end: 2020
  3. ZOLADEX [Concomitant]
     Active Substance: GOSERELIN ACETATE
     Indication: BREAST CANCER METASTATIC
     Dosage: UNK, MONTHLY(ONCE A MONTH)

REACTIONS (2)
  - Stomatitis [Unknown]
  - White blood cell count decreased [Unknown]

NARRATIVE: CASE EVENT DATE: 20191216
